FAERS Safety Report 5356533-7 (Version None)
Quarter: 2007Q2

REPORT INFORMATION
  Report Type: 
  Country: None (occurrence: None)
  Receive Date: 20070530
  Receipt Date: 20061128
  Transmission Date: 20071010
  Serious: Yes (Hospitalization)
  Sender: FDA-Public Use
  Company Number: US200608006601

PATIENT
  Age: 37 Year
  Sex: Female
  Weight: 72.6 kg

DRUGS (3)
  1. ZYPREXA [Suspect]
     Dosage: 7.5 MG, ORAL
     Route: 048
     Dates: start: 20031211, end: 20040128
  2. ARIPIPRAZOLE [Concomitant]
  3. RISPERIDONE [Concomitant]

REACTIONS (6)
  - BLOOD TRIGLYCERIDES INCREASED [None]
  - DIABETES MELLITUS [None]
  - GLYCOSURIA [None]
  - HYPERPHAGIA [None]
  - PANCREATITIS [None]
  - POLYDIPSIA [None]
